FAERS Safety Report 9431806 (Version 2)
Quarter: 2013Q3

REPORT INFORMATION
  Report Type: Spontaneous
  Country: FR (occurrence: FR)
  Receive Date: 20130731
  Receipt Date: 20130813
  Transmission Date: 20140515
  Serious: Yes (Other)
  Sender: FDA-Public Use
  Company Number: FR-AMGEN-FRASP2013052846

PATIENT
  Age: 81 Year
  Sex: Female
  Weight: 65 kg

DRUGS (3)
  1. NPLATE [Suspect]
     Indication: IMMUNE THROMBOCYTOPENIC PURPURA
     Dosage: 160 MUG, UNK
     Route: 065
     Dates: start: 2009
  2. SOLUPRED                           /00016201/ [Concomitant]
     Dosage: 4 TABLETS, QD
  3. KARDEGIC [Concomitant]
     Dosage: 75 MG, QD

REACTIONS (2)
  - Platelet count decreased [Unknown]
  - Lymphadenopathy [Recovered/Resolved]
